FAERS Safety Report 9568951 (Version 1)
Quarter: 2013Q3

REPORT INFORMATION
  Report Type: Spontaneous
  Country: US (occurrence: US)
  Receive Date: 20130930
  Receipt Date: 20130930
  Transmission Date: 20140515
  Serious: No
  Sender: FDA-Public Use
  Company Number: US-AMGEN-USASP2013060699

PATIENT
  Age: 71 Year
  Sex: Female

DRUGS (2)
  1. ENBREL [Suspect]
     Indication: PSORIATIC ARTHROPATHY
     Dosage: 50 MG, EVERY 72 HOURS
     Route: 058
  2. ENBREL [Suspect]
     Indication: PSORIASIS

REACTIONS (3)
  - Platelet count decreased [Recovering/Resolving]
  - Drug ineffective [Unknown]
  - Psoriasis [Not Recovered/Not Resolved]
